FAERS Safety Report 10978180 (Version 3)
Quarter: 2015Q2

REPORT INFORMATION
  Report Type: Spontaneous
  Country: JP (occurrence: JP)
  Receive Date: 20150402
  Receipt Date: 20150421
  Transmission Date: 20150821
  Serious: Yes (Other)
  Sender: FDA-Public Use
  Company Number: JP-PFIZER INC-2015107827

PATIENT
  Age: 51 Year
  Sex: Female

DRUGS (14)
  1. SENNOSIDE [Concomitant]
     Active Substance: SENNOSIDES
     Dosage: UNK
  2. ETIZOLAM [Concomitant]
     Active Substance: ETIZOLAM
     Dosage: UNK
  3. BENZALIN [Concomitant]
     Active Substance: NITRAZEPAM
     Dosage: UNK
  4. TRESIBA [Concomitant]
     Active Substance: INSULIN DEGLUDEC
     Dosage: UNK
  5. PENTOIL [Concomitant]
     Dosage: UNK
  6. WINTERMIN [Concomitant]
     Active Substance: PROMAZINE
     Dosage: UNK
  7. CHAMPIX [Suspect]
     Active Substance: VARENICLINE TARTRATE
     Dosage: UNK DIFFERENT DOSES
     Route: 048
     Dates: start: 20150202, end: 20150218
  8. DEPAS [Suspect]
     Active Substance: ETIZOLAM
     Dosage: UNK
     Dates: start: 20150123
  9. ROHYPNOL [Concomitant]
     Active Substance: FLUNITRAZEPAM
     Dosage: UNK
  10. CHAMPIX [Suspect]
     Active Substance: VARENICLINE TARTRATE
     Indication: SMOKING CESSATION THERAPY
     Dosage: UNK
     Route: 048
     Dates: start: 20141224
  11. AKINETON [Concomitant]
     Active Substance: BIPERIDEN HYDROCHLORIDE
     Dosage: UNK
  12. NOVORAPID [Concomitant]
     Active Substance: INSULIN ASPART
     Dosage: UNK
  13. VEGETAMIN [Concomitant]
     Active Substance: CHLORPROMAZINE HYDROCHLORIDE\PHENOBARBITAL\PROMETHAZINE HYDROCHLORIDE
     Dosage: UNK
  14. LOXOPROFEN [Concomitant]
     Active Substance: LOXOPROFEN
     Dosage: UNK

REACTIONS (1)
  - Hepatic function abnormal [Unknown]

NARRATIVE: CASE EVENT DATE: 20150129
